FAERS Safety Report 9971103 (Version 1)
Quarter: 2014Q1

REPORT INFORMATION
  Report Type: Spontaneous
  Country: US (occurrence: None)
  Receive Date: 20140127
  Receipt Date: 20140127
  Transmission Date: 20141002
  Serious: Yes (Other)
  Sender: FDA-Public Use
  Company Number: 1101260

PATIENT
  Sex: 0

DRUGS (3)
  1. ACTIVASE [Suspect]
     Indication: ACUTE MYOCARDIAL INFARCTION
  2. NITROGLYCERIN (NITROGLYCERIN) [Concomitant]
  3. PROCARDIA (NIFEDIPINE) [Concomitant]

REACTIONS (3)
  - Sinus arrhythmia [None]
  - Extrasystoles [None]
  - Ventricular extrasystoles [None]
